FAERS Safety Report 9024709 (Version 2)
Quarter: 2013Q1

REPORT INFORMATION
  Report Type: Spontaneous
  Country: US (occurrence: US)
  Receive Date: 20130121
  Receipt Date: 20130214
  Transmission Date: 20140127
  Serious: Yes (Other)
  Sender: FDA-Public Use
  Company Number: US-BIOGENIDEC-2013BI003603

PATIENT
  Age: 64 Year
  Sex: Male

DRUGS (2)
  1. AVONEX [Suspect]
     Indication: MULTIPLE SCLEROSIS
     Route: 030
     Dates: start: 20020212
  2. SILACE [Concomitant]

REACTIONS (3)
  - Pelvic fracture [Recovered/Resolved]
  - Road traffic accident [Recovered/Resolved]
  - Hernia [Recovered/Resolved]
